FAERS Safety Report 23138855 (Version 2)
Quarter: 2023Q4

REPORT INFORMATION
  Report Type: Spontaneous
  Country: CA (occurrence: CA)
  Receive Date: 20231102
  Receipt Date: 20231110
  Transmission Date: 20240110
  Serious: Yes (Other)
  Sender: FDA-Public Use
  Company Number: CA-BAUSCH-BL-2023-016007

PATIENT
  Sex: Male

DRUGS (1)
  1. JUBLIA [Suspect]
     Active Substance: EFINACONAZOLE
     Indication: Product used for unknown indication
     Dosage: 8ML
     Route: 061

REACTIONS (1)
  - Skin graft failure [Not Recovered/Not Resolved]

NARRATIVE: CASE EVENT DATE: 20230101
